FAERS Safety Report 6166766-8 (Version None)
Quarter: 2009Q2

REPORT INFORMATION
  Report Type: 
  Country: None (occurrence: None)
  Receive Date: 20090424
  Receipt Date: 20090413
  Transmission Date: 20091009
  Serious: Yes (Other)
  Sender: FDA-Public Use
  Company Number: US-PFIZER INC-2009197737

PATIENT
  Sex: Female
  Weight: 53.523 kg

DRUGS (1)
  1. XALATAN [Suspect]
     Indication: GLAUCOMA
     Dosage: 0.005MG ONE DROP IN EACH EYE; 1X/DAY
     Route: 047
     Dates: start: 20090217

REACTIONS (3)
  - DYSPNOEA [None]
  - FATIGUE [None]
  - HEART RATE INCREASED [None]
